FAERS Safety Report 7824978-9 (Version None)
Quarter: 2011Q4

REPORT INFORMATION
  Report Type: 
  Country: None (occurrence: None)
  Receive Date: 20111019
  Receipt Date: 20110331
  Transmission Date: 20120403
  Serious: No
  Sender: FDA-Public Use
  Company Number: US-BRISTOL-MYERS SQUIBB COMPANY-15639859

PATIENT
  Age: 66 Year
  Sex: Female

DRUGS (3)
  1. ZETIA [Concomitant]
  2. AVALIDE [Suspect]
     Dosage: 1 DF:300/12.5MG
     Dates: start: 20101206
  3. NADOLOL [Concomitant]

REACTIONS (2)
  - ABDOMINAL PAIN [None]
  - HAEMATURIA [None]
